FAERS Safety Report 6099784-9 (Version None)
Quarter: 2009Q1

REPORT INFORMATION
  Report Type: 
  Country: None (occurrence: None)
  Receive Date: 20090303
  Receipt Date: 20090218
  Transmission Date: 20090719
  Serious: Yes (Other)
  Sender: FDA-Public Use
  Company Number: PHHY2009IE05219

PATIENT
  Sex: Female

DRUGS (7)
  1. CLOZARIL [Suspect]
     Indication: SCHIZOPHRENIA
     Dosage: 100 MG IN MORNING, 412 MG? AT NIGHT
     Route: 048
     Dates: start: 20081229
  2. CLOZARIL [Suspect]
     Indication: DELUSIONAL DISORDER, PERSECUTORY TYPE
     Dosage: 550 MG/ DAY
     Route: 048
  3. ZOPICLONE [Concomitant]
     Indication: INSOMNIA
     Dosage: 15 MG/DAY
     Route: 048
     Dates: start: 20081215
  4. PROPRANOLOL [Concomitant]
     Indication: ANXIETY
     Dosage: 40 MG DAILY
     Route: 048
     Dates: start: 20081230
  5. PROPRANOLOL [Concomitant]
     Indication: TACHYCARDIA
  6. LORAZEPAM [Concomitant]
     Indication: ANXIETY
     Dosage: 4 MG DAILYK
     Route: 048
     Dates: start: 20090108
  7. CHLORPHENTERMINE 65MG TAB [Concomitant]
     Indication: ANXIETY
     Dosage: 300 MG, PRN
     Route: 048
     Dates: start: 20090129

REACTIONS (7)
  - DELUSIONAL DISORDER, PERSECUTORY TYPE [None]
  - ELECTROCARDIOGRAM CHANGE [None]
  - ELECTROCARDIOGRAM T WAVE ABNORMAL [None]
  - INCREASED APPETITE [None]
  - SALIVARY HYPERSECRETION [None]
  - TACHYCARDIA [None]
  - VENTRICULAR EXTRASYSTOLES [None]
